FAERS Safety Report 21889032 (Version 5)
Quarter: 2023Q4

REPORT INFORMATION
  Report Type: Spontaneous
  Country: US (occurrence: US)
  Receive Date: 20230120
  Receipt Date: 20231212
  Transmission Date: 20240109
  Serious: No
  Sender: FDA-Public Use
  Company Number: US-SA-SAC20230119000440

PATIENT
  Age: 11 Year
  Sex: Male

DRUGS (6)
  1. ELOCTATE [Suspect]
     Active Substance: EFMOROCTOCOG ALFA
     Dosage: 2892 IU
     Route: 065
  2. ELOCTATE [Suspect]
     Active Substance: EFMOROCTOCOG ALFA
     Dosage: 2892 IU
     Route: 065
  3. ELOCTATE [Suspect]
     Active Substance: EFMOROCTOCOG ALFA
     Dosage: 3029 IU (+/-10%), BIW EVERY MONDAY AND THURSDAY FOR BREAKTHROUGH BLEEDS
     Route: 042
  4. ELOCTATE [Suspect]
     Active Substance: EFMOROCTOCOG ALFA
     Dosage: 3029 IU (+/-10%), BIW EVERY MONDAY AND THURSDAY FOR BREAKTHROUGH BLEEDS
     Route: 042
  5. ELOCTATE [Suspect]
     Active Substance: EFMOROCTOCOG ALFA
     Dosage: 3029 IU (+/-10%), PRN FOR BREAKTHROUGH BLEEDS
     Route: 042
  6. ELOCTATE [Suspect]
     Active Substance: EFMOROCTOCOG ALFA
     Dosage: 3029 IU (+/-10%), PRN FOR BREAKTHROUGH BLEEDS
     Route: 042

REACTIONS (7)
  - Gait disturbance [Unknown]
  - Pain in extremity [Unknown]
  - Axillary pain [Unknown]
  - Flank pain [Unknown]
  - Abdominal pain [Unknown]
  - Arthralgia [Unknown]
  - Joint swelling [Unknown]

NARRATIVE: CASE EVENT DATE: 20230114
